FAERS Safety Report 8612924-X (Version None)
Quarter: 2012Q3

REPORT INFORMATION
  Report Type: 
  Country: None (occurrence: None)
  Receive Date: 20120822
  Receipt Date: 20120427
  Transmission Date: 20120928
  Serious: No
  Sender: FDA-Public Use
  Company Number: US-ALLERGAN-1206033US

PATIENT
  Sex: Male

DRUGS (2)
  1. SANCTURA XR [Suspect]
     Indication: HYPERTONIC BLADDER
     Dosage: 60 MG, QD
     Route: 048
     Dates: start: 20120425, end: 20120427
  2. LAVIA [Concomitant]
     Indication: HYPERTONIC BLADDER

REACTIONS (2)
  - URINE COLOUR ABNORMAL [None]
  - URINE ODOUR ABNORMAL [None]
